FAERS Safety Report 7507256-7 (Version None)
Quarter: 2011Q2

REPORT INFORMATION
  Report Type: 
  Country: None (occurrence: None)
  Receive Date: 20110526
  Receipt Date: 20110524
  Transmission Date: 20111010
  Serious: Yes (Hospitalization)
  Sender: FDA-Public Use
  Company Number: DE-ABBOTT-11P-062-0713717-00

PATIENT
  Age: 32 Year
  Sex: Female

DRUGS (1)
  1. VALPROATE SODIUM [Suspect]
     Indication: MUSCLE SPASMS

REACTIONS (2)
  - FACE OEDEMA [None]
  - BRAIN OEDEMA [None]
